FAERS Safety Report 13430778 (Version 2)
Quarter: 2017Q2

REPORT INFORMATION
  Report Type: Report from Study
  Country: AU (occurrence: AU)
  Receive Date: 20170412
  Receipt Date: 20170501
  Transmission Date: 20170830
  Serious: Yes (Other)
  Sender: FDA-Public Use
  Company Number: AU-TORRENT-00000171

PATIENT
  Age: 28 Year
  Sex: Female

DRUGS (7)
  1. DULOXETINE. [Concomitant]
     Active Substance: DULOXETINE
  2. PREGABALIN. [Concomitant]
     Active Substance: PREGABALIN
  3. ERGOCALCIFEROL. [Concomitant]
     Active Substance: ERGOCALCIFEROL
  4. PALIPERIDONE. [Concomitant]
     Active Substance: PALIPERIDONE
  5. SODIUM VALPROATE [Suspect]
     Active Substance: VALPROATE SODIUM
  6. OLANZAPINE. [Suspect]
     Active Substance: OLANZAPINE
  7. CLOZAPINE. [Suspect]
     Active Substance: CLOZAPINE

REACTIONS (14)
  - Haematocrit increased [Unknown]
  - Blood glucose increased [Not Recovered/Not Resolved]
  - Protein total decreased [Not Recovered/Not Resolved]
  - Blood chloride decreased [Recovered/Resolved]
  - Neutropenia [Recovered/Resolved]
  - Monocyte count decreased [Unknown]
  - Blood albumin decreased [Not Recovered/Not Resolved]
  - Blood uric acid decreased [Recovered/Resolved]
  - White blood cell count decreased [Recovered/Resolved]
  - Pyrexia [Unknown]
  - Blood bicarbonate increased [Recovered/Resolved]
  - Blood urea decreased [Recovered/Resolved]
  - Blood phosphorus increased [Recovered/Resolved]
  - Platelet count decreased [Recovered/Resolved]

NARRATIVE: CASE EVENT DATE: 20170131
